FAERS Safety Report 8272037-6 (Version None)
Quarter: 2012Q1

REPORT INFORMATION
  Report Type: 
  Country: None (occurrence: None)
  Receive Date: 20120308
  Receipt Date: 20120112
  Transmission Date: 20120608
  Serious: No
  Sender: FDA-Public Use
  Company Number: PHEH2012US001320

PATIENT
  Age: 42 Year
  Sex: Female

DRUGS (1)
  1. FANAPT [Suspect]
     Dosage: 8 MG, UNK, ORAL
     Route: 048

REACTIONS (1)
  - VISUAL IMPAIRMENT [None]
